FAERS Safety Report 4364576-5 (Version None)
Quarter: 2004Q2

REPORT INFORMATION
  Report Type: 
  Country: None (occurrence: None)
  Receive Date: 20040521
  Receipt Date: 20040507
  Transmission Date: 20050107
  Serious: Yes (Death)
  Sender: FDA-Public Use
  Company Number: 02100-JPN-04-0101

PATIENT
  Age: 85 Year
  Sex: Female

DRUGS (6)
  1. CILOSTAZOL [Suspect]
     Indication: HEART RATE INCREASED
     Dosage: 200 MG ORAL
     Route: 048
     Dates: start: 20040207, end: 20040215
  2. TEMOCAPRIL HYDROCHLORIDE [Concomitant]
  3. FUROSEMIDE [Concomitant]
  4. SPIRONOLACTONE [Concomitant]
  5. DOPAMINE HYDROCHLORIDE [Concomitant]
  6. DOBUTAMINE HCL [Concomitant]

REACTIONS (2)
  - BLOOD PRESSURE DECREASED [None]
  - CARDIAC FAILURE [None]
